FAERS Safety Report 20056908 (Version 1)
Quarter: 2021Q4

REPORT INFORMATION
  Report Type: Spontaneous
  Country: BE (occurrence: BE)
  Receive Date: 20211111
  Receipt Date: 20211111
  Transmission Date: 20220303
  Serious: Yes (Hospitalization)
  Sender: FDA-Public Use
  Company Number: None

PATIENT
  Sex: Female
  Weight: 64 kg

DRUGS (3)
  1. PROLIA [Suspect]
     Active Substance: DENOSUMAB
     Indication: Osteopetrosis
     Dosage: 60 MILLIGRAM, Q6MO
     Route: 065
     Dates: start: 201905
  2. OSTEOTON [Concomitant]
  3. BIOSIL [Concomitant]

REACTIONS (3)
  - Palpitations [Recovered/Resolved]
  - Joint swelling [Recovered/Resolved]
  - Cardiac discomfort [Recovered/Resolved]
